FAERS Safety Report 5246899-0 (Version None)
Quarter: 2007Q1

REPORT INFORMATION
  Report Type: 
  Country: None (occurrence: None)
  Receive Date: 20070226
  Receipt Date: 20070214
  Transmission Date: 20070707
  Serious: Yes (Other)
  Sender: FDA-Public Use
  Company Number: JP-PFIZER INC-2007011139

PATIENT
  Age: 67 Year
  Sex: Female

DRUGS (7)
  1. CABASER [Suspect]
     Indication: PARKINSON'S DISEASE
     Route: 048
  2. ALMARL [Suspect]
     Route: 048
  3. FOSAMAX [Concomitant]
     Route: 048
  4. MENESIT [Concomitant]
     Route: 048
  5. DEPAS [Concomitant]
     Route: 048
  6. POLLAKISU [Concomitant]
     Route: 048
  7. RIVOTRIL [Concomitant]
     Route: 048

REACTIONS (2)
  - HYPOGLYCAEMIA [None]
  - TREMOR [None]
